FAERS Safety Report 5829011-6 (Version None)
Quarter: 2008Q3

REPORT INFORMATION
  Report Type: 
  Country: None (occurrence: None)
  Receive Date: 20080731
  Receipt Date: 20080731
  Transmission Date: 20090109
  Serious: Yes (Disabling)
  Sender: FDA-Public Use
  Company Number: PHEH1999US02966

PATIENT
  Sex: Male
  Weight: 69 kg

DRUGS (20)
  1. NEORAL [Suspect]
     Indication: LUNG TRANSPLANT
     Route: 048
     Dates: start: 19990405
  2. AZATHIOPRINE COMP-AZA+ [Suspect]
     Indication: LUNG TRANSPLANT
     Dosage: 1-3 MG
     Route: 048
     Dates: start: 19990427, end: 19990816
  3. AZATHIOPRINE COMP-AZA+ [Suspect]
     Dosage: UNK
     Route: 048
     Dates: start: 19990825, end: 19990830
  4. AZATHIOPRINE COMP-AZA+ [Suspect]
     Dosage: UNK
     Route: 048
     Dates: start: 19990913
  5. PREDNISONE [Concomitant]
     Indication: LUNG TRANSPLANT
     Dosage: 9 MG AM, 5 MG PM
  6. CYTOVENE [Concomitant]
     Dosage: 500 UNK, BID
  7. BACTRIM [Concomitant]
  8. BIAXIN [Concomitant]
     Dosage: 250 UNK, BID
  9. NYSTATIN [Concomitant]
  10. LASIX [Concomitant]
     Dosage: 40 UNK, UNK
  11. IRON [Concomitant]
     Dosage: UNK, BID
  12. FOLIC ACID [Concomitant]
     Dosage: 1 MG, BID
  13. AXID [Concomitant]
  14. TUMS [Concomitant]
     Dosage: UNK, TID
  15. RESTORIL [Concomitant]
     Dosage: 15 UNK, QD
  16. ZOLOFT [Concomitant]
     Dosage: 25 UNK, UNK
  17. FLOMAX [Concomitant]
  18. COZAAR [Concomitant]
     Dosage: 50 UNK, UNK
  19. BENADRYL [Concomitant]
  20. PRAVASTATIN [Concomitant]
     Dosage: 20 UNK, UNK

REACTIONS (4)
  - BLINDNESS [None]
  - MACULAR OEDEMA [None]
  - OPTIC ISCHAEMIC NEUROPATHY [None]
  - VISUAL ACUITY REDUCED [None]
